FAERS Safety Report 6433144-3 (Version None)
Quarter: 2009Q4

REPORT INFORMATION
  Report Type: 
  Country: None (occurrence: None)
  Receive Date: 20091109
  Receipt Date: 20091026
  Transmission Date: 20100525
  Serious: Yes (Hospitalization)
  Sender: FDA-Public Use
  Company Number: PHHY2009IE40902

PATIENT
  Sex: Male
  Weight: 53 kg

DRUGS (15)
  1. CLOZARIL [Suspect]
     Indication: SCHIZOPHRENIA
     Dosage: 100MG IN MORNING, 25MG IN EVENING; 300MG AT NIGHT
     Route: 048
     Dates: start: 20021113, end: 20091016
  2. SERTRALINE HCL [Concomitant]
     Dosage: 100 MG, QD
     Route: 048
  3. EPILIM CHRONO [Concomitant]
     Dosage: 500 MG, BID
     Route: 048
  4. ASPIRIN [Concomitant]
     Dosage: 75 MG, QD
     Route: 048
  5. OMEPRAZOLE [Concomitant]
     Dosage: 40 MG, QD
     Route: 048
  6. ATORVASTATIN [Concomitant]
     Dosage: 10 MG, NOCTE
     Route: 048
  7. RAMIPRIL [Concomitant]
     Dosage: 1.25 MG, QD
     Route: 048
  8. BIPERIDEN HYDROCHLORIDE TAB [Concomitant]
     Dosage: 1 MG, BID
     Route: 048
  9. NULYTELY [Concomitant]
     Dosage: 1 TABLET BD
     Route: 048
  10. MYCOSTATIN [Concomitant]
     Dosage: 1 TABLET TDS
     Route: 048
  11. SERENACE [Concomitant]
     Dosage: 1-2 TABLETS NOCTE
     Route: 048
  12. PULMICORT [Concomitant]
     Dosage: 1 MG, BID
  13. COMBIVENT [Concomitant]
     Dosage: 2.5ML/UNIT QID
  14. VENTOLIN [Concomitant]
     Dosage: 2.5 MG, QID
  15. SALINE [Concomitant]
     Dosage: 0.9%/2.5ML PRN

REACTIONS (6)
  - BLOOD BICARBONATE INCREASED [None]
  - BLOOD CREATININE DECREASED [None]
  - BLOOD SODIUM DECREASED [None]
  - CHRONIC OBSTRUCTIVE PULMONARY DISEASE [None]
  - DYSPNOEA [None]
  - PRODUCTIVE COUGH [None]
